FAERS Safety Report 12089847 (Version 1)
Quarter: 2016Q1

REPORT INFORMATION
  Report Type: Spontaneous
  Country: GB (occurrence: GB)
  Receive Date: 20160218
  Receipt Date: 20160218
  Transmission Date: 20160526
  Serious: Yes (Hospitalization, Other)
  Sender: FDA-Public Use
  Company Number: US-ASTRAZENECA-2016SE08646

PATIENT
  Age: 8 Month

DRUGS (15)
  1. SYNAGIS [Suspect]
     Active Substance: PALIVIZUMAB
     Indication: PRODUCT USED FOR UNKNOWN INDICATION
     Route: 030
     Dates: start: 20160127
  2. SYNAGIS [Suspect]
     Active Substance: PALIVIZUMAB
     Indication: BRONCHOPULMONARY DYSPLASIA
     Route: 030
     Dates: start: 20150930, end: 20150930
  3. SYNAGIS [Suspect]
     Active Substance: PALIVIZUMAB
     Indication: PRODUCT USED FOR UNKNOWN INDICATION
     Route: 030
     Dates: start: 20151030, end: 20151030
  4. SYNAGIS [Suspect]
     Active Substance: PALIVIZUMAB
     Indication: PRODUCT USED FOR UNKNOWN INDICATION
     Route: 030
     Dates: start: 20151127, end: 20151127
  5. SYNAGIS [Suspect]
     Active Substance: PALIVIZUMAB
     Indication: BRONCHOPULMONARY DYSPLASIA
     Route: 030
     Dates: start: 20160127
  6. SYNAGIS [Suspect]
     Active Substance: PALIVIZUMAB
     Indication: OXYGEN SUPPLEMENTATION
     Route: 030
     Dates: start: 20160127
  7. SYNAGIS [Suspect]
     Active Substance: PALIVIZUMAB
     Indication: OXYGEN SUPPLEMENTATION
     Route: 030
     Dates: start: 20150930, end: 20150930
  8. SYNAGIS [Suspect]
     Active Substance: PALIVIZUMAB
     Indication: PRODUCT USED FOR UNKNOWN INDICATION
     Route: 030
     Dates: start: 20151229, end: 20151229
  9. SYNAGIS [Suspect]
     Active Substance: PALIVIZUMAB
     Indication: BRONCHOPULMONARY DYSPLASIA
     Route: 030
     Dates: start: 20151030, end: 20151030
  10. SYNAGIS [Suspect]
     Active Substance: PALIVIZUMAB
     Indication: OXYGEN SUPPLEMENTATION
     Route: 030
     Dates: start: 20151229, end: 20151229
  11. SYNAGIS [Suspect]
     Active Substance: PALIVIZUMAB
     Indication: OXYGEN SUPPLEMENTATION
     Route: 030
     Dates: start: 20151127, end: 20151127
  12. SYNAGIS [Suspect]
     Active Substance: PALIVIZUMAB
     Indication: PRODUCT USED FOR UNKNOWN INDICATION
     Route: 030
     Dates: start: 20150930, end: 20150930
  13. SYNAGIS [Suspect]
     Active Substance: PALIVIZUMAB
     Indication: OXYGEN SUPPLEMENTATION
     Route: 030
     Dates: start: 20151030, end: 20151030
  14. SYNAGIS [Suspect]
     Active Substance: PALIVIZUMAB
     Indication: BRONCHOPULMONARY DYSPLASIA
     Route: 030
     Dates: start: 20151229, end: 20151229
  15. SYNAGIS [Suspect]
     Active Substance: PALIVIZUMAB
     Indication: BRONCHOPULMONARY DYSPLASIA
     Route: 030
     Dates: start: 20151127, end: 20151127

REACTIONS (4)
  - Poor feeding infant [Unknown]
  - Urine output decreased [Unknown]
  - Rhinitis [Unknown]
  - Respiratory syncytial virus bronchiolitis [Unknown]

NARRATIVE: CASE EVENT DATE: 201601
